FAERS Safety Report 25035055 (Version 1)
Quarter: 2025Q1

REPORT INFORMATION
  Report Type: Spontaneous
  Country: SK (occurrence: SK)
  Receive Date: 20250304
  Receipt Date: 20250304
  Transmission Date: 20250409
  Serious: Yes (Hospitalization, Other)
  Sender: TAKEDA
  Company Number: SK-TAKEDA-2025TUS020965

PATIENT
  Sex: Male

DRUGS (7)
  1. ENTYVIO [Suspect]
     Active Substance: VEDOLIZUMAB
     Indication: Colitis ulcerative
  2. URSODIOL [Concomitant]
     Active Substance: URSODIOL
  3. Neurol [Concomitant]
  4. METARAMINOL [Concomitant]
     Active Substance: METARAMINOL
  5. Itoprida [Concomitant]
  6. Dereflin [Concomitant]
  7. ELIQUIS [Concomitant]
     Active Substance: APIXABAN

REACTIONS (2)
  - Gastritis erosive [Unknown]
  - Vena cava thrombosis [Unknown]

NARRATIVE: CASE EVENT DATE: 20250101
